FAERS Safety Report 15455029 (Version 2)
Quarter: 2018Q4

REPORT INFORMATION
  Report Type: Spontaneous
  Country: ID (occurrence: ID)
  Receive Date: 20181002
  Receipt Date: 20181109
  Transmission Date: 20190204
  Serious: Yes (Hospitalization)
  Sender: FDA-Public Use
  Company Number: ID-NOVOPROD-622960

PATIENT
  Age: 50 Year
  Sex: Male

DRUGS (1)
  1. VICTOZA [Suspect]
     Active Substance: LIRAGLUTIDE
     Indication: METABOLIC SYNDROME
     Dosage: 0.6 MG, SINGLE
     Route: 065

REACTIONS (3)
  - Dehydration [Recovering/Resolving]
  - Vomiting [Unknown]
  - Off label use [Unknown]
